FAERS Safety Report 9723118 (Version 1)
Quarter: 2013Q4

REPORT INFORMATION
  Report Type: Spontaneous
  Country: US (occurrence: None)
  Receive Date: 20131126
  Receipt Date: 20131126
  Transmission Date: 20140711
  Serious: Yes (Hospitalization)
  Sender: FDA-Public Use
  Company Number: 2013P1021339

PATIENT
  Age: 61 Year
  Sex: Male

DRUGS (4)
  1. GABAPENTIN [Suspect]
     Indication: PAIN
  2. GABAPENTIN [Suspect]
     Indication: DIABETIC NEUROPATHY
  3. OXYCODONE [Suspect]
     Indication: DIABETIC NEUROPATHY
  4. OXYCODONE [Suspect]
     Indication: PAIN

REACTIONS (10)
  - Nausea [None]
  - Vomiting [None]
  - Hyperhidrosis [None]
  - Myalgia [None]
  - Restlessness [None]
  - Blood pressure increased [None]
  - Confusional state [None]
  - Tremor [None]
  - Mental disorder [None]
  - Drug withdrawal syndrome [None]
